FAERS Safety Report 6197680-X (Version None)
Quarter: 2009Q2

REPORT INFORMATION
  Report Type: 
  Country: None (occurrence: None)
  Receive Date: 20090521
  Receipt Date: 20090518
  Transmission Date: 20091009
  Serious: Yes (Hospitalization)
  Sender: FDA-Public Use
  Company Number: US-BRISTOL-MYERS SQUIBB COMPANY-14629166

PATIENT
  Age: 19 Year
  Sex: Female
  Weight: 72 kg

DRUGS (6)
  1. CYCLOPHOSPHAMIDE [Suspect]
     Indication: BREAST CANCER
     Dosage: INITIAL DOSE ON 25FEB2009.
     Route: 042
     Dates: start: 20090508, end: 20090508
  2. DOXORUBICIN HCL [Suspect]
     Indication: BREAST CANCER
     Dosage: INITIAL DOSE: 25FEB2009.
     Route: 042
     Dates: start: 20090505, end: 20090505
  3. EFFEXOR XR [Concomitant]
     Route: 048
     Dates: start: 20090220
  4. DARVOCET [Concomitant]
     Dosage: 1DF=100/600MG
     Route: 048
     Dates: start: 20090318
  5. TOPAMAX [Concomitant]
     Route: 048
     Dates: start: 20090215
  6. LORAZEPAM [Concomitant]
     Route: 048
     Dates: start: 20090220

REACTIONS (1)
  - DEHYDRATION [None]
